FAERS Safety Report 6836764-7 (Version None)
Quarter: 2010Q3

REPORT INFORMATION
  Report Type: 
  Country: None (occurrence: None)
  Receive Date: 20100713
  Receipt Date: 20100706
  Transmission Date: 20110219
  Serious: Yes (Hospitalization)
  Sender: FDA-Public Use
  Company Number: IT-ABBOTT-10P-083-0643544-00

PATIENT
  Age: 50 Year
  Sex: Female

DRUGS (4)
  1. DEPAKENE [Suspect]
     Indication: SELF INJURIOUS BEHAVIOUR
     Route: 048
     Dates: start: 20100429, end: 20100429
  2. DEPAKENE [Suspect]
     Indication: INTENTIONAL OVERDOSE
  3. DELORAZEPAM [Suspect]
     Indication: SELF INJURIOUS BEHAVIOUR
     Route: 048
     Dates: start: 20100429, end: 20100429
  4. DELORAZEPAM [Suspect]
     Indication: INTENTIONAL OVERDOSE

REACTIONS (4)
  - DRUG LEVEL ABOVE THERAPEUTIC [None]
  - MOTOR DYSFUNCTION [None]
  - MULTIPLE DRUG OVERDOSE INTENTIONAL [None]
  - SOPOR [None]
